FAERS Safety Report 14707643 (Version 1)
Quarter: 2018Q2

REPORT INFORMATION
  Report Type: Spontaneous
  Country: US (occurrence: US)
  Receive Date: 20180403
  Receipt Date: 20180403
  Transmission Date: 20180711
  Serious: No
  Sender: FDA-Public Use
  Company Number: US-BEH-2018089188

PATIENT
  Sex: Female
  Weight: 63.49 kg

DRUGS (28)
  1. DIPHENHYDRAMINE. [Concomitant]
     Active Substance: DIPHENHYDRAMINE
     Route: 065
  2. ZOFRAN [Concomitant]
     Active Substance: ONDANSETRON HYDROCHLORIDE
     Route: 065
  3. VITAMIN B12 [Concomitant]
     Active Substance: CYANOCOBALAMIN
     Route: 065
  4. SALMON OIL [Concomitant]
     Active Substance: FISH OIL
     Route: 065
  5. HIZENTRA [Suspect]
     Active Substance: HUMAN IMMUNOGLOBULIN G
     Dosage: 8 G, QW
     Route: 058
     Dates: start: 20171206, end: 20180321
  6. EPINEPHRINE. [Concomitant]
     Active Substance: EPINEPHRINE
     Route: 065
  7. VITAMIN K2                         /00357701/ [Concomitant]
     Route: 065
  8. ACETAMINOPHEN. [Concomitant]
     Active Substance: ACETAMINOPHEN
     Route: 065
  9. DEPAKOTE [Concomitant]
     Active Substance: DIVALPROEX SODIUM
     Route: 065
  10. WELLBUTRIN [Concomitant]
     Active Substance: BUPROPION HYDROCHLORIDE
     Route: 065
  11. L-TRYPTOPHAN [Concomitant]
     Active Substance: TRYPTOPHAN
     Route: 065
  12. BERBERINE [Concomitant]
     Active Substance: BERBERINE
     Route: 065
  13. VENTOLIN [Concomitant]
     Active Substance: ALBUTEROL SULFATE
     Route: 065
  14. MAGNESIUM OXIDE. [Concomitant]
     Active Substance: MAGNESIUM OXIDE
     Route: 065
  15. VITAMIN D3 [Concomitant]
     Active Substance: CHOLECALCIFEROL
     Route: 065
  16. ZINC. [Concomitant]
     Active Substance: ZINC
     Route: 065
  17. BIOTIN [Concomitant]
     Active Substance: BIOTIN
     Route: 065
  18. VITAMIN B COMPLEX [Concomitant]
     Active Substance: CYANOCOBALAMIN\DEXPANTHENOL\NIACINAMIDE\PYRIDOXINE HYDROCHLORIDE\RIBOFLAVIN 5^-PHOSPHATE SODIUM\THIAMINE HYDROCHLORIDE\VITAMIN B COMPLEX
     Route: 065
  19. FAMOTIDINE. [Concomitant]
     Active Substance: FAMOTIDINE
     Route: 065
  20. HIZENTRA [Suspect]
     Active Substance: HUMAN IMMUNOGLOBULIN G
     Indication: IMMUNODEFICIENCY COMMON VARIABLE
     Dosage: 8 G, TOT
     Route: 058
  21. XANAX [Concomitant]
     Active Substance: ALPRAZOLAM
     Route: 065
  22. PROZAC [Concomitant]
     Active Substance: FLUOXETINE HYDROCHLORIDE
     Route: 065
  23. ALPHA LIPOIC ACID [Concomitant]
     Active Substance: .ALPHA.-LIPOIC ACID
     Route: 065
  24. LEVOTHYROXINE. [Concomitant]
     Active Substance: LEVOTHYROXINE
     Route: 065
  25. PROAIR HFA [Concomitant]
     Active Substance: ALBUTEROL SULFATE
     Route: 065
  26. ONDANSETRON [Concomitant]
     Active Substance: ONDANSETRON
     Route: 065
  27. NAC                                /00082801/ [Concomitant]
     Route: 065
  28. LMX                                /00033401/ [Concomitant]
     Route: 065

REACTIONS (4)
  - Administration site swelling [Recovered/Resolved]
  - Fatigue [Recovered/Resolved]
  - Thinking abnormal [Recovered/Resolved]
  - Nausea [Recovered/Resolved]
